FAERS Safety Report 10018538 (Version 1)
Quarter: 2014Q1

REPORT INFORMATION
  Report Type: Spontaneous
  Country: US (occurrence: None)
  Receive Date: 20140314
  Receipt Date: 20140314
  Transmission Date: 20141002
  Serious: Yes (Life-Threatening, Hospitalization, Disabling)
  Sender: FDA-Public Use
  Company Number: None

PATIENT
  Age: 47 Year
  Sex: Female
  Weight: 86.18 kg

DRUGS (1)
  1. RITUXAN [Suspect]
     Indication: RHEUMATOID ARTHRITIS
     Dosage: 2 INFUSIONS
     Route: 042

REACTIONS (12)
  - Pneumonia [None]
  - Malaise [None]
  - Hepatitis [None]
  - Encephalitis [None]
  - Cytomegalovirus infection [None]
  - Asthenia [None]
  - Balance disorder [None]
  - Confusional state [None]
  - Viral infection [None]
  - Bacterial infection [None]
  - Mental status changes [None]
  - Immune system disorder [None]
